FAERS Safety Report 20603066 (Version 1)
Quarter: 2022Q1

REPORT INFORMATION
  Report Type: Spontaneous
  Country: US (occurrence: US)
  Receive Date: 20220316
  Receipt Date: 20220316
  Transmission Date: 20220423
  Serious: No
  Sender: FDA-Public Use
  Company Number: US-ORGANON-O2202USA001291

PATIENT
  Sex: Male
  Weight: 102.05 kg

DRUGS (4)
  1. PREGNYL [Suspect]
     Active Substance: CHORIOGONADOTROPIN ALFA
     Dosage: 500 INTERNATIONAL UNIT, QW
     Route: 030
     Dates: start: 202201
  2. STERILE WATER [Suspect]
     Active Substance: WATER
     Dosage: UNK, QW
     Route: 030
     Dates: start: 202201
  3. TESTOSTERONE [Concomitant]
     Active Substance: TESTOSTERONE
     Dosage: UNK
     Dates: start: 2022
  4. ANASTROZOLE [Concomitant]
     Active Substance: ANASTROZOLE

REACTIONS (9)
  - Acne [Recovered/Resolved]
  - Product contamination physical [Unknown]
  - Product dose omission issue [Unknown]
  - Product leakage [Unknown]
  - Accidental exposure to product [Unknown]
  - Exposure via skin contact [Unknown]
  - Product dose omission issue [Unknown]
  - Circumstance or information capable of leading to medication error [Unknown]
  - Product quality issue [Unknown]

NARRATIVE: CASE EVENT DATE: 20220101
